FAERS Safety Report 8561376-7 (Version None)
Quarter: 2012Q3

REPORT INFORMATION
  Report Type: 
  Country: None (occurrence: None)
  Receive Date: 20120802
  Receipt Date: 20120712
  Transmission Date: 20120928
  Serious: No
  Sender: FDA-Public Use
  Company Number: US-ASTRAZENECA-2012SE48278

PATIENT
  Age: 75 Year
  Sex: Male
  Weight: 81.6 kg

DRUGS (3)
  1. CELEBREX [Concomitant]
     Indication: BACK PAIN
  2. NEXIUM [Suspect]
     Indication: BARRETT'S OESOPHAGUS
     Route: 048
  3. LIBRIUM [Concomitant]
     Indication: ANXIETY

REACTIONS (2)
  - OFF LABEL USE [None]
  - PARKINSON'S DISEASE [None]
